FAERS Safety Report 9847996 (Version 1)
Quarter: 2014Q1

REPORT INFORMATION
  Report Type: Spontaneous
  Country: US (occurrence: None)
  Receive Date: 20140124
  Receipt Date: 20140124
  Transmission Date: 20141002
  Serious: Yes (Other)
  Sender: FDA-Public Use
  Company Number: None

PATIENT
  Age: 58 Year
  Sex: Female
  Weight: 98.88 kg

DRUGS (1)
  1. HUMIRA [Suspect]
     Indication: PSORIATIC ARTHROPATHY
     Dosage: TOOK 1 DOSE ON 10-31-13, 40 MG 1 DOSE ONCE EVERY 2 WEEKS GIVEN INTO/UNDER THE SKIN
     Route: 058
     Dates: start: 20131031

REACTIONS (3)
  - Pruritus [None]
  - Rash [None]
  - Wheezing [None]
